FAERS Safety Report 4306907-8 (Version None)
Quarter: 2004Q1

REPORT INFORMATION
  Report Type: 
  Country: None (occurrence: None)
  Receive Date: 20040227
  Receipt Date: 20040120
  Transmission Date: 20041129
  Serious: Yes (Hospitalization)
  Sender: FDA-Public Use
  Company Number: PHNU2004DE00608

PATIENT
  Age: 49 Year
  Sex: Female

DRUGS (3)
  1. ESTALIS SEQUI [Suspect]
     Indication: MENOPAUSAL SYMPTOMS
     Route: 062
     Dates: start: 20020205
  2. BUSCOPAN [Concomitant]
  3. CIBALGINA COMP. [Concomitant]

REACTIONS (4)
  - EYE OPERATION [None]
  - RETINAL DETACHMENT [None]
  - VISUAL ACUITY REDUCED [None]
  - VITREOUS HAEMORRHAGE [None]
